FAERS Safety Report 19767266 (Version 1)
Quarter: 2021Q3

REPORT INFORMATION
  Report Type: Spontaneous
  Country: US (occurrence: US)
  Receive Date: 20210830
  Receipt Date: 20210830
  Transmission Date: 20211014
  Serious: No
  Sender: FDA-Public Use
  Company Number: None

PATIENT
  Age: 79 Year
  Sex: Male
  Weight: 69.4 kg

DRUGS (16)
  1. TAMSULOSIN [Concomitant]
     Active Substance: TAMSULOSIN
     Dates: start: 20210823
  2. TEMAZEPAM. [Concomitant]
     Active Substance: TEMAZEPAM
     Dates: start: 20210823
  3. ACETAMINOPHEN. [Concomitant]
     Active Substance: ACETAMINOPHEN
     Dates: start: 20210823
  4. IOPAMIDOL [Concomitant]
     Active Substance: IOPAMIDOL
     Dates: start: 20210829
  5. OYCODONE [Concomitant]
     Dates: start: 20210823
  6. REMDESIVIR. [Suspect]
     Active Substance: REMDESIVIR
     Indication: COVID-19
     Route: 041
     Dates: start: 20210827, end: 20210830
  7. RIVAROXABAN [Concomitant]
     Active Substance: RIVAROXABAN
     Dates: start: 20210824
  8. VITAMIN B12 [Concomitant]
     Active Substance: CYANOCOBALAMIN
     Dates: start: 20210823
  9. DULOXETINE. [Concomitant]
     Active Substance: DULOXETINE
     Dates: start: 20210824
  10. LATANOPROST. [Concomitant]
     Active Substance: LATANOPROST
     Dates: start: 20210823
  11. ASPIRIN. [Concomitant]
     Active Substance: ASPIRIN
     Dates: start: 20210823
  12. HYDROMORPHONE [Concomitant]
     Active Substance: HYDROMORPHONE
     Dates: start: 20210823
  13. HUMALOG [Concomitant]
     Active Substance: INSULIN LISPRO
     Dates: start: 20210827
  14. MESALAMINE. [Concomitant]
     Active Substance: MESALAMINE
     Dates: start: 20210823
  15. METOPROLOL SUCCINATE. [Concomitant]
     Active Substance: METOPROLOL SUCCINATE
     Dates: start: 20210829
  16. FERRLECIT [Concomitant]
     Active Substance: SODIUM FERRIC GLUCONATE COMPLEX
     Dates: start: 20210829

REACTIONS (1)
  - Liver function test increased [None]

NARRATIVE: CASE EVENT DATE: 20210830
